FAERS Safety Report 17572045 (Version 3)
Quarter: 2020Q2

REPORT INFORMATION
  Report Type: Report from Study
  Country: CN (occurrence: CN)
  Receive Date: 20200323
  Receipt Date: 20200622
  Transmission Date: 20200713
  Serious: Yes (Other)
  Sender: FDA-Public Use
  Company Number: CN-ROCHE-2565369

PATIENT
  Age: 63 Year
  Sex: Male
  Weight: 60 kg

DRUGS (3)
  1. AVASTIN [Suspect]
     Active Substance: BEVACIZUMAB
     Indication: COLON CANCER
     Route: 041
     Dates: start: 20170721
  2. AVASTIN [Suspect]
     Active Substance: BEVACIZUMAB
     Route: 041
     Dates: start: 20180530
  3. AVASTIN [Suspect]
     Active Substance: BEVACIZUMAB
     Route: 041
     Dates: start: 20200311

REACTIONS (8)
  - Hydroureter [Unknown]
  - Hyperfibrinogenaemia [Unknown]
  - Pneumonitis [Unknown]
  - Ureteric dilatation [Unknown]
  - Bronchiectasis [Unknown]
  - Renal hydrocele [Unknown]
  - Decreased appetite [Unknown]
  - Pyrexia [Unknown]
